FAERS Safety Report 7275161-X (Version None)
Quarter: 2011Q1

REPORT INFORMATION
  Report Type: 
  Country: None (occurrence: None)
  Receive Date: 20110204
  Receipt Date: 20110125
  Transmission Date: 20110831
  Serious: Yes (Death)
  Sender: FDA-Public Use
  Company Number: PHHY2010JP73092

PATIENT
  Sex: Male

DRUGS (6)
  1. MUCODYNE [Concomitant]
     Dosage: 750 MG, UNK
     Route: 048
     Dates: start: 20100622
  2. AMN107 [Suspect]
     Dosage: 400 MG, DAILY
     Route: 048
     Dates: start: 20100908, end: 20101017
  3. RENIVACE [Concomitant]
     Dosage: 2.5 MG, UNK
     Route: 048
     Dates: start: 20100115, end: 20101017
  4. GLUCONSAN K [Concomitant]
     Dosage: 3 G, UNK
     Route: 048
     Dates: start: 20100622
  5. AMN107 [Suspect]
     Indication: CHRONIC MYELOID LEUKAEMIA
     Dosage: 200 MG, DAILY
     Route: 048
     Dates: start: 20100824, end: 20100907
  6. LASIX [Concomitant]
     Dosage: 20 MG, UNK
     Route: 048
     Dates: start: 20100115, end: 20101017

REACTIONS (1)
  - PNEUMONIA ASPIRATION [None]
